FAERS Safety Report 23411020 (Version 1)
Quarter: 2024Q1

REPORT INFORMATION
  Report Type: Spontaneous
  Country: US (occurrence: None)
  Receive Date: 20240116
  Receipt Date: 20240116
  Transmission Date: 20240410
  Serious: No
  Sender: FDA-Public Use
  Company Number: None

PATIENT
  Age: 65 Year
  Sex: Female
  Weight: 59.4 kg

DRUGS (1)
  1. RECLAST [Suspect]
     Active Substance: ZOLEDRONIC ACID
     Indication: Osteoporosis
     Dosage: OTHER QUANTITY : 1 INFUSION;?OTHER FREQUENCY : INITIAL TREATMENT;?
     Route: 042
     Dates: start: 20240102

REACTIONS (15)
  - Arthralgia [None]
  - Arthralgia [None]
  - Arthralgia [None]
  - Neck pain [None]
  - Back pain [None]
  - Chest pain [None]
  - Gait disturbance [None]
  - Pyrexia [None]
  - Decreased appetite [None]
  - Urine abnormality [None]
  - Urine abnormality [None]
  - Fatigue [None]
  - Asthenia [None]
  - Intervertebral disc disorder [None]
  - Infusion related reaction [None]

NARRATIVE: CASE EVENT DATE: 20240103
